FAERS Safety Report 11134704 (Version 1)
Quarter: 2015Q2

REPORT INFORMATION
  Report Type: Report from Study
  Country: US (occurrence: US)
  Receive Date: 20150525
  Receipt Date: 20150525
  Transmission Date: 20150821
  Serious: Yes (Hospitalization)
  Sender: FDA-Public Use
  Company Number: US-BIOGENIDEC-2015BI037343

PATIENT
  Age: 46 Year
  Sex: Female
  Weight: 113 kg

DRUGS (13)
  1. TECFIDERA [Suspect]
     Active Substance: DIMETHYL FUMARATE
     Indication: MULTIPLE SCLEROSIS
     Route: 048
     Dates: start: 20140813, end: 20140819
  2. VICTOZA 18MG/3ML [Concomitant]
     Route: 058
  3. COUMADIN (WARFARIN SODIUM) 2.5 MG [Concomitant]
     Route: 048
  4. TECFIDERA [Suspect]
     Active Substance: DIMETHYL FUMARATE
     Indication: MULTIPLE SCLEROSIS
     Route: 048
     Dates: start: 20140820, end: 20141107
  5. VENTOLIN HFA [Concomitant]
     Active Substance: ALBUTEROL SULFATE
  6. COLESTIPOL HCL [Concomitant]
     Active Substance: COLESTIPOL HYDROCHLORIDE
     Route: 048
  7. NEXIUM [Concomitant]
     Active Substance: ESOMEPRAZOLE MAGNESIUM
  8. ATORVASTATIN CALCIUM. [Concomitant]
     Active Substance: ATORVASTATIN CALCIUM
     Route: 048
  9. NEURONTIN [Concomitant]
     Active Substance: GABAPENTIN
     Route: 048
  10. METFORMIN HCL ER [Concomitant]
     Active Substance: METFORMIN HYDROCHLORIDE
     Route: 048
  11. LISINOPRIL. [Concomitant]
     Active Substance: LISINOPRIL
     Route: 048
  12. BACLOFEN. [Concomitant]
     Active Substance: BACLOFEN
     Route: 048
  13. CYMBALTA (DULOXETINE HCL) [Concomitant]

REACTIONS (7)
  - Flushing [Unknown]
  - Blood viscosity increased [Not Recovered/Not Resolved]
  - Thrombosis [Not Recovered/Not Resolved]
  - Paraesthesia [Unknown]
  - Systemic lupus erythematosus [Not Recovered/Not Resolved]
  - Migraine [Unknown]
  - Diabetes mellitus [Not Recovered/Not Resolved]

NARRATIVE: CASE EVENT DATE: 20150217
